FAERS Safety Report 20901532 (Version 1)
Quarter: 2022Q2

REPORT INFORMATION
  Report Type: Spontaneous
  Country: GB (occurrence: GB)
  Receive Date: 20220601
  Receipt Date: 20220601
  Transmission Date: 20220720
  Serious: Yes (Life-Threatening, Disabling, Other)
  Sender: FDA-Public Use
  Company Number: GB-MHRA-MED-202205281725401650-NXDWJ

PATIENT
  Age: 24 Year
  Sex: Female
  Weight: 56 kg

DRUGS (2)
  1. ELOCON [Suspect]
     Active Substance: MOMETASONE FUROATE
     Indication: Eczema
     Dosage: ON PROBLEM AREAS (LARGE AREAS OF MY BODY) 3-4 TIMES A WEEK; ;
     Dates: start: 20191113, end: 20210921
  2. EUMOVATE [Suspect]
     Active Substance: CLOBETASONE BUTYRATE
     Dosage: UNK

REACTIONS (10)
  - Medication error [Unknown]
  - Erythema [Recovering/Resolving]
  - Skin burning sensation [Recovering/Resolving]
  - Skin exfoliation [Recovering/Resolving]
  - Rash pruritic [Recovering/Resolving]
  - Insomnia [Recovering/Resolving]
  - Contusion [Recovered/Resolved]
  - Decreased appetite [Recovered/Resolved]
  - Dry skin [Recovering/Resolving]
  - Asthenia [Recovering/Resolving]

NARRATIVE: CASE EVENT DATE: 20210506
